FAERS Safety Report 9431450 (Version 2)
Quarter: 2013Q3

REPORT INFORMATION
  Report Type: Report from Study
  Country: US (occurrence: US)
  Receive Date: 20130730
  Receipt Date: 20130816
  Transmission Date: 20140515
  Serious: Yes (Hospitalization, Other)
  Sender: FDA-Public Use
  Company Number: US-US-EMD SERONO, INC.-7226380

PATIENT
  Age: 35 Year
  Sex: Female

DRUGS (3)
  1. REBIF [Suspect]
     Indication: MULTIPLE SCLEROSIS
     Route: 058
  2. REBIF [Suspect]
     Route: 058
     Dates: start: 20130718
  3. KEPPRA [Concomitant]
     Indication: CONVULSION

REACTIONS (5)
  - Road traffic accident [Unknown]
  - Fall [Unknown]
  - Head injury [Unknown]
  - Convulsion [Not Recovered/Not Resolved]
  - Memory impairment [Not Recovered/Not Resolved]
